FAERS Safety Report 19924144 (Version 4)
Quarter: 2021Q4

REPORT INFORMATION
  Report Type: Spontaneous
  Country: JP (occurrence: JP)
  Receive Date: 20211005
  Receipt Date: 20211208
  Transmission Date: 20220303
  Serious: Yes (Other)
  Sender: FDA-Public Use
  Company Number: JP-BRISTOL-MYERS SQUIBB COMPANY-BMS-2021-088492

PATIENT
  Age: 62 Year
  Sex: Female

DRUGS (9)
  1. ORENCIA [Suspect]
     Active Substance: ABATACEPT
     Indication: Rheumatoid arthritis
     Dosage: 125 MILLIGRAM, QWK
     Route: 058
     Dates: start: 20160902
  2. ALFAROL [Concomitant]
     Active Substance: ALFACALCIDOL
     Indication: Product used for unknown indication
     Dosage: 0.5 MICROGRAM, QD,30 MINUTES AFTER BREAKFAST,TAKE TREATMENT FOR 56 DAYS
     Route: 065
     Dates: start: 20170106
  3. LOXOPROFEN SODIUM DIHYDRATE [Concomitant]
     Active Substance: LOXOPROFEN SODIUM DIHYDRATE
     Indication: Product used for unknown indication
     Dosage: 1 TABLET ONCE, 30 MINUTES AFTER BREAKFAST,TAKE TREATMENT FOR 56 DAYS
     Route: 065
     Dates: start: 20170106
  4. ESOMEPRAZOLE [Concomitant]
     Active Substance: ESOMEPRAZOLE
     Indication: Product used for unknown indication
     Dosage: 1 CP ONCE, 30 MINUTES AFTER BREAKFAST, TAKE TREATMENT FOR 56 DAYS
     Route: 065
     Dates: start: 20170106
  5. IGURATIMOD [Concomitant]
     Active Substance: IGURATIMOD
     Indication: Product used for unknown indication
     Dosage: 1 TABLET ONCE, 30 MINUTES AFTER BREAKFAST AND DINNER, TAKE TREATMENT FOR 56 DAYS
     Route: 065
     Dates: start: 20170106
  6. METHOTREXATE [Concomitant]
     Active Substance: METHOTREXATE
     Indication: Product used for unknown indication
     Dosage: 2 TABLET ONCE, 30 MINUTES AFTER BREAKFAST AND DINNER, 8-DAYS TREATMENT,TAKING ON TUESDAY,8 DAYS TREA
     Route: 065
     Dates: start: 20170106
  7. METHOTREXATE [Concomitant]
     Active Substance: METHOTREXATE
     Dosage: 2 TABLET ONCE, 30 MINUTES AFTER BREAKFAST AND DINNER, 8-DAY QUOTA,TAKING ON TUESDAY
     Route: 065
     Dates: start: 20170106
  8. FOLIAMIN NICHIYAKU [Concomitant]
     Indication: Product used for unknown indication
     Dosage: 1 TABLET ONCE, 30 MINUTES AFTER BREAKFAST, 8DAYS TREATMENT
     Route: 065
     Dates: start: 20170106
  9. FOLIAMIN NICHIYAKU [Concomitant]
     Dosage: 1 TABLET ONCE, 30 MINUTES AFTER BREAKFAST, 8DAYS TREATMENT, TAKING ON THURSDAY
     Route: 065
     Dates: start: 20170106

REACTIONS (1)
  - Pneumocystis jirovecii pneumonia [Recovering/Resolving]

NARRATIVE: CASE EVENT DATE: 20170214
